FAERS Safety Report 21632296 (Version 2)
Quarter: 2023Q1

REPORT INFORMATION
  Report Type: Spontaneous
  Country: GB (occurrence: GB)
  Receive Date: 20221123
  Receipt Date: 20230102
  Transmission Date: 20230417
  Serious: Yes (Death, Life-Threatening, Other)
  Sender: FDA-Public Use
  Company Number: GB-MHRA-MED-202211120033070060-ZQGSM

PATIENT

DRUGS (1)
  1. ATORVASTATIN [Suspect]
     Active Substance: ATORVASTATIN
     Indication: Blood cholesterol
     Dosage: 10MG ONCE A DAY
     Route: 065
     Dates: start: 20210901, end: 20211001

REACTIONS (2)
  - Motor neurone disease [Fatal]
  - Oxidative stress [Unknown]

NARRATIVE: CASE EVENT DATE: 20211003
